FAERS Safety Report 8653621 (Version 3)
Quarter: 2012Q4

REPORT INFORMATION
  Report Type: 
  Country: DK (occurrence: DK)
  Receive Date: 20120709
  Receipt Date: 20120924
  Transmission Date: 20130627
  Serious: Yes (Hospitalization)
  Sender: FDA-Public Use
  Company Number: DK-ELI_LILLY_AND_COMPANY-DK201207000243

PATIENT
  Sex: Female
  Weight: 94 kg

DRUGS (2)
  1. EFIENT [Suspect]
     Indication: ACUTE CORONARY SYNDROME
  2. ASPIRIN [Concomitant]

REACTIONS (1)
  - Angina pectoris [Recovered/Resolved]
